FAERS Safety Report 6705261-1 (Version None)
Quarter: 2010Q2

REPORT INFORMATION
  Report Type: 
  Country: None (occurrence: None)
  Receive Date: 20100430
  Receipt Date: 20100423
  Transmission Date: 20101027
  Serious: Yes (Other)
  Sender: FDA-Public Use
  Company Number: US-AMGEN-QUU408224

PATIENT
  Sex: Male

DRUGS (2)
  1. ARANESP [Suspect]
     Indication: DRUG USE FOR UNKNOWN INDICATION
     Dates: start: 20091001
  2. WARFARIN SODIUM [Concomitant]

REACTIONS (2)
  - OCULAR HYPERAEMIA [None]
  - URINARY BLADDER HAEMORRHAGE [None]
